FAERS Safety Report 19500571 (Version 1)
Quarter: 2021Q3

REPORT INFORMATION
  Report Type: Spontaneous
  Country: DE (occurrence: DE)
  Receive Date: 20210707
  Receipt Date: 20210707
  Transmission Date: 20211014
  Serious: Yes (Hospitalization)
  Sender: FDA-Public Use
  Company Number: DE-TEVA-2021-DE-1929840

PATIENT
  Age: 82 Year
  Sex: Male

DRUGS (20)
  1. AIRFLUSAL FORSPIRO 50MIKROGRAMM/250MIKROGRAMM [Concomitant]
     Dosage: 2 DOSAGE FORMS DAILY; 500|50 UG, 1?0?1?0
     Route: 055
  2. ESCITALOPRAM [Concomitant]
     Active Substance: ESCITALOPRAM OXALATE
     Dosage: 1 DOSAGE FORMS DAILY; 20 MG, 0.5?0?0.5?0
     Route: 048
  3. GLIMEPIRID [Concomitant]
     Active Substance: GLIMEPIRIDE
     Dosage: 1 MILLIGRAM DAILY; 1?0?0?0
     Route: 048
  4. CANDESARTAN. [Concomitant]
     Active Substance: CANDESARTAN
     Dosage: 8 MILLIGRAM DAILY; 1?0?0?0
     Route: 048
  5. SIMETICON [Concomitant]
     Dosage: 750 MILLIGRAM DAILY; 1?1?1?0
     Route: 048
  6. LEVOTHYROXIN?NATRIUM [Concomitant]
     Active Substance: LEVOTHYROXINE SODIUM
     Dosage: 50 MICROGRAM DAILY;  1?0?0?0
     Route: 048
  7. MIRTAZAPIN [Concomitant]
     Active Substance: MIRTAZAPINE
     Dosage: 1 DOSAGE FORMS DAILY; 30 MG, 0.5?0?0.5?0
     Route: 048
  8. ZOLPIDEM [Concomitant]
     Active Substance: ZOLPIDEM TARTRATE
     Dosage: 10 MILLIGRAM DAILY; 0?0?0?1
     Route: 048
  9. TORASEMID [Suspect]
     Active Substance: TORSEMIDE
     Dosage: 10 MILLIGRAM DAILY;  1?0?0?0
     Route: 048
  10. EMPAGLIFLOZIN [Concomitant]
     Active Substance: EMPAGLIFLOZIN
     Dosage: 30 MILLIGRAM DAILY; 1?1?1?0
     Route: 048
  11. LAXOBERAL 7,5MG [Concomitant]
     Dosage: 10 GTT DAILY; 7.5 MG, 0?0?10?0
     Route: 048
  12. ALPRAZOLAM. [Concomitant]
     Active Substance: ALPRAZOLAM
     Dosage: 0.5 MG, ONE TO 2 IF NEEDED
     Route: 048
  13. SPIRIVA [Concomitant]
     Active Substance: TIOTROPIUM BROMIDE MONOHYDRATE
     Dosage: 2 DOSAGE FORMS DAILY; 18 UG, 2?0?0?0 , CAPSULES WITH INHALABLE POWDER
     Route: 055
  14. ALLOPURINOL. [Concomitant]
     Active Substance: ALLOPURINOL
     Dosage: 200 MILLIGRAM DAILY; 1?0?1?0
     Route: 048
  15. PANTOPRAZOL [Concomitant]
     Active Substance: PANTOPRAZOLE SODIUM
     Dosage: 80 MILLIGRAM DAILY; 1?0?1?0
     Route: 048
  16. TILIDINE/NALOXONE [Suspect]
     Active Substance: NALOXONE HYDROCHLORIDE\TILIDINE HYDROCHLORIDE
     Dosage: 3 DOSAGE FORMS DAILY; 4|50 MG, 1?1?1?0
     Route: 048
  17. METAMIZOL [Concomitant]
     Active Substance: METAMIZOLE SODIUM
     Dosage: 90 GTT DAILY; 500 MG, 30?30?30?0,
     Route: 048
  18. TAMSULOSIN [Concomitant]
     Active Substance: TAMSULOSIN
     Dosage: 2 DOSAGE FORMS DAILY; 0.4 MG, 2?0?0?0
     Route: 048
  19. PANKREATIN MIKRO?RATIOPHARM 20000 [Concomitant]
     Dosage: 2000 IU (INTERNATIONAL UNIT) DAILY; 0?0?1?0
     Route: 048
  20. KALINOR [Concomitant]
     Dosage: 629.4 MILLIGRAM DAILY; 1?0?1?0
     Route: 048

REACTIONS (5)
  - Micturition disorder [Unknown]
  - Constipation [Unknown]
  - Flatulence [Unknown]
  - Abdominal pain [Unknown]
  - Haematuria [Unknown]
